FAERS Safety Report 8063608-0 (Version None)
Quarter: 2012Q1

REPORT INFORMATION
  Report Type: 
  Country: None (occurrence: None)
  Receive Date: 20120123
  Receipt Date: 20120116
  Transmission Date: 20120608
  Serious: Yes (Death, Hospitalization)
  Sender: FDA-Public Use
  Company Number: JP-AMGEN-JPNCT2011067975

PATIENT
  Age: 65 Year
  Sex: Male
  Weight: 57 kg

DRUGS (13)
  1. PANITUMUMAB [Suspect]
     Dosage: 6 MG/KG, Q2WK
     Route: 041
     Dates: start: 20110929, end: 20110929
  2. UZEL [Concomitant]
     Indication: COLORECTAL CANCER
     Dosage: 75 MG, QD
     Route: 048
     Dates: start: 20090326
  3. PANITUMUMAB [Suspect]
     Dosage: 6 MG/KG, Q2WK
     Route: 041
     Dates: start: 20110512, end: 20110512
  4. PANITUMUMAB [Suspect]
     Dosage: 6 MG/KG, Q2WK
     Route: 041
     Dates: start: 20110901, end: 20110901
  5. UFT [Concomitant]
     Indication: COLORECTAL CANCER
     Dosage: 450 MG, QD
     Route: 048
     Dates: start: 20090326
  6. PANITUMUMAB [Suspect]
     Dosage: 6 MG/KG, Q2WK
     Route: 041
     Dates: start: 20110804, end: 20110804
  7. PANITUMUMAB [Suspect]
     Dosage: 6 MG/KG, Q2WK
     Route: 041
     Dates: start: 20110302, end: 20110404
  8. PANITUMUMAB [Suspect]
     Dosage: 6 MG/KG, Q2WK
     Route: 041
     Dates: start: 20110707, end: 20110707
  9. PANITUMUMAB [Suspect]
     Dosage: 6 MG/KG, Q2WK
     Route: 041
     Dates: start: 20111027
  10. PANITUMUMAB [Suspect]
     Dosage: 6 MG/KG, Q2WK
     Route: 041
     Dates: start: 20110609, end: 20110609
  11. PANITUMUMAB [Suspect]
     Indication: COLORECTAL CANCER
     Dosage: 6 MG/KG, Q2WK
     Route: 041
     Dates: start: 20100826, end: 20101125
  12. UFT [Concomitant]
     Dosage: 450 MG, UNK
     Route: 048
     Dates: start: 20100826
  13. UZEL [Concomitant]
     Dosage: 75 MG, UNK
     Route: 048
     Dates: start: 20100826

REACTIONS (5)
  - METASTASES TO CENTRAL NERVOUS SYSTEM [None]
  - DERMATITIS ACNEIFORM [None]
  - DRY SKIN [None]
  - OEDEMA [None]
  - COLORECTAL CANCER [None]
